FAERS Safety Report 20157232 (Version 3)
Quarter: 2021Q4

REPORT INFORMATION
  Report Type: Spontaneous
  Country: FR (occurrence: FR)
  Receive Date: 20211207
  Receipt Date: 20211223
  Transmission Date: 20220304
  Serious: Yes (Other)
  Sender: FDA-Public Use
  Company Number: FR-GILEAD-2021-0559455

PATIENT
  Age: 30 Month
  Sex: Male
  Weight: 35 kg

DRUGS (8)
  1. RANEXA [Suspect]
     Active Substance: RANOLAZINE
     Indication: Timothy syndrome
     Dosage: 375 MG, SR BID
     Route: 065
     Dates: start: 202003
  2. RANEXA [Suspect]
     Active Substance: RANOLAZINE
     Indication: Timothy syndrome
     Dosage: 375 MG, QD
     Route: 065
  3. RANEXA [Suspect]
     Active Substance: RANOLAZINE
     Dosage: 500 MG, QD
     Route: 048
     Dates: start: 202104
  4. RANEXA [Suspect]
     Active Substance: RANOLAZINE
     Route: 048
     Dates: start: 20200302, end: 20200304
  5. RANEXA [Suspect]
     Active Substance: RANOLAZINE
     Route: 048
     Dates: start: 20200304, end: 2020
  6. RANEXA [Suspect]
     Active Substance: RANOLAZINE
     Route: 048
     Dates: start: 2020, end: 2021
  7. NADOLOL [Concomitant]
     Active Substance: NADOLOL
     Indication: Timothy syndrome
  8. NADOLOL [Concomitant]
     Active Substance: NADOLOL
     Indication: Product used for unknown indication

REACTIONS (2)
  - Electrocardiogram QT prolonged [Recovered/Resolved]
  - Off label use [Not Recovered/Not Resolved]

NARRATIVE: CASE EVENT DATE: 20200301
